FAERS Safety Report 5095351-4 (Version None)
Quarter: 2006Q3

REPORT INFORMATION
  Report Type: 
  Country: None (occurrence: None)
  Receive Date: 20060901
  Receipt Date: 20060829
  Transmission Date: 20061208
  Serious: Yes (Life-Threatening, Hospitalization)
  Sender: FDA-Public Use
  Company Number: AU-SANOFI-SYNTHELABO-F01200601894

PATIENT
  Sex: Female

DRUGS (7)
  1. OXAZEPAM [Concomitant]
  2. SIMVASTIN [Concomitant]
     Dates: end: 20060815
  3. CITALOPRAM [Concomitant]
     Dates: end: 20060815
  4. AVASTIN [Suspect]
     Route: 042
     Dates: start: 20060721, end: 20060721
  5. CAPECITABINE [Suspect]
     Route: 048
     Dates: end: 20060701
  6. OXALIPLATIN [Suspect]
     Indication: COLON CANCER
     Route: 042
     Dates: start: 20060721, end: 20060721
  7. NORVASC [Concomitant]
     Dates: end: 20060815

REACTIONS (7)
  - ATELECTASIS [None]
  - CIRCULATORY COLLAPSE [None]
  - NAUSEA [None]
  - PLEURAL EFFUSION [None]
  - PULMONARY EMBOLISM [None]
  - URINARY TRACT INFECTION [None]
  - VOMITING [None]
